FAERS Safety Report 10638725 (Version 1)
Quarter: 2014Q4

REPORT INFORMATION
  Report Type: Spontaneous
  Country: US (occurrence: None)
  Receive Date: 20141205
  Receipt Date: 20141205
  Transmission Date: 20150529
  Serious: Yes (Hospitalization)
  Sender: FDA-Public Use
  Company Number: None

PATIENT
  Age: 64 Year
  Sex: Male
  Weight: 80.9 kg

DRUGS (1)
  1. ATORVASTATIN [Suspect]
     Active Substance: ATORVASTATIN
     Indication: HEPATITIS C
     Dosage: MG
     Route: 048
     Dates: start: 20130418, end: 20141102

REACTIONS (4)
  - Rhabdomyolysis [None]
  - Anaemia [None]
  - Acute kidney injury [None]
  - Cardiac failure congestive [None]

NARRATIVE: CASE EVENT DATE: 20141102
